FAERS Safety Report 8345280-5 (Version None)
Quarter: 2012Q2

REPORT INFORMATION
  Report Type: 
  Country: None (occurrence: None)
  Receive Date: 20120508
  Receipt Date: 20120430
  Transmission Date: 20120825
  Serious: Yes (Other)
  Sender: FDA-Public Use
  Company Number: BE-CELGENEUS-013-C5013-12040431

PATIENT
  Sex: Male
  Weight: 96 kg

DRUGS (6)
  1. PREDNISONE TAB [Suspect]
     Indication: MULTIPLE MYELOMA
     Route: 065
     Dates: start: 20090702
  2. THALIDOMIDE [Suspect]
     Dates: end: 20091008
  3. MELPHALAN HYDROCHLORIDE [Suspect]
     Indication: MULTIPLE MYELOMA
     Route: 065
     Dates: start: 20090702
  4. MELPHALAN HYDROCHLORIDE [Suspect]
     Route: 065
     Dates: end: 20090927
  5. PREDNISONE TAB [Suspect]
     Route: 065
     Dates: end: 20090927
  6. THALIDOMIDE [Suspect]
     Indication: MULTIPLE MYELOMA
     Route: 048
     Dates: start: 20090702

REACTIONS (1)
  - PLASMACYTOMA [None]
